FAERS Safety Report 9871493 (Version 1)
Quarter: 2014Q1

REPORT INFORMATION
  Report Type: Spontaneous
  Country: US (occurrence: None)
  Receive Date: 20140204
  Receipt Date: 20140204
  Transmission Date: 20141002
  Serious: Yes (Other)
  Sender: FDA-Public Use
  Company Number: None

PATIENT
  Age: 79 Year
  Sex: Male
  Weight: 64.41 kg

DRUGS (10)
  1. ZALEPLON [Suspect]
     Indication: SLEEP DISORDER
     Route: 048
     Dates: start: 20140117, end: 20140117
  2. WARFARIN [Concomitant]
  3. FUROSEMIDE [Concomitant]
  4. LEVOTHYROXINE [Concomitant]
  5. OMEPRAZOLE [Concomitant]
  6. METOPROLOL TARTRATE [Concomitant]
  7. SIMVASTATIN [Concomitant]
  8. ALLOPURINOL [Concomitant]
  9. ISOSORBIDE [Concomitant]
  10. ASPIRIN [Concomitant]

REACTIONS (1)
  - Conduct disorder [None]
